FAERS Safety Report 9686218 (Version 1)
Quarter: 2013Q4

REPORT INFORMATION
  Report Type: Spontaneous
  Country: US (occurrence: US)
  Receive Date: 20131113
  Receipt Date: 20131113
  Transmission Date: 20140711
  Serious: Yes (Other)
  Sender: FDA-Public Use
  Company Number: PHHY2013US125661

PATIENT
  Sex: Female

DRUGS (6)
  1. DAPTOMYCIN [Suspect]
     Dosage: 6 MG/KG, Q48H
     Route: 042
  2. METRONIDAZOLE [Suspect]
  3. CEFEPIME [Suspect]
  4. PIPERACILLIN/TAZOBACTAM [Concomitant]
  5. VANCOMYCIN [Concomitant]
     Route: 042
  6. CIPROFLOXACIN [Concomitant]

REACTIONS (2)
  - Hypercalcaemia [Recovered/Resolved]
  - Pathogen resistance [Unknown]
